FAERS Safety Report 19812316 (Version 2)
Quarter: 2022Q1

REPORT INFORMATION
  Report Type: Report from Study
  Country: FR (occurrence: FR)
  Receive Date: 20210910
  Receipt Date: 20220312
  Transmission Date: 20220424
  Serious: Yes (Other)
  Sender: FDA-Public Use
  Company Number: FR-ABBVIE-21K-056-4071781-00

PATIENT
  Age: 16 Year
  Sex: Female

DRUGS (2)
  1. HUMIRA [Suspect]
     Active Substance: ADALIMUMAB
     Indication: Juvenile spondyloarthritis
     Route: 058
     Dates: start: 20210305, end: 20210305
  2. HUMIRA [Suspect]
     Active Substance: ADALIMUMAB
     Dosage: WEEK 2
     Route: 058
     Dates: start: 202108

REACTIONS (13)
  - Hypotonia [Unknown]
  - Fatigue [Unknown]
  - Speech disorder [Unknown]
  - Vision blurred [Unknown]
  - Hyperhidrosis [Unknown]
  - Presyncope [Unknown]
  - Tremor [Unknown]
  - Injection site extravasation [Recovered/Resolved]
  - Affective disorder [Unknown]
  - Impaired healing [Unknown]
  - Arthralgia [Unknown]
  - Oedema peripheral [Unknown]
  - Pain in extremity [Unknown]

NARRATIVE: CASE EVENT DATE: 20210101
